FAERS Safety Report 7625805-5 (Version None)
Quarter: 2011Q3

REPORT INFORMATION
  Report Type: 
  Country: None (occurrence: None)
  Receive Date: 20110713
  Receipt Date: 20110628
  Transmission Date: 20111222
  Serious: Yes (Life-Threatening)
  Sender: FDA-Public Use
  Company Number: TCI2011A03752

PATIENT
  Age: 64 Year
  Sex: Male

DRUGS (4)
  1. BIGUANIDES [Concomitant]
  2. ANTITHROMBOTIC AGENTS [Concomitant]
  3. ACTOS [Suspect]
     Indication: TYPE 2 DIABETES MELLITUS
     Dosage: 15 MG (15 MG, 1 D) PER ORAL
     Route: 048
     Dates: start: 20090706
  4. SULFONAMIDES, UREA DERIVATIVES [Concomitant]

REACTIONS (1)
  - PROSTATE CANCER [None]
